FAERS Safety Report 8353205-1 (Version None)
Quarter: 2012Q2

REPORT INFORMATION
  Report Type: 
  Country: None (occurrence: None)
  Receive Date: 20120511
  Receipt Date: 20120508
  Transmission Date: 20120825
  Serious: Yes (Other)
  Sender: FDA-Public Use
  Company Number: CN-ASTRAZENECA-2012SE29297

PATIENT
  Age: 70 Year
  Sex: Male

DRUGS (8)
  1. METOPROLOL TARTRATE [Concomitant]
  2. CAPTOPRIL [Concomitant]
  3. OMEPRAZOLE [Suspect]
     Indication: DYSPEPSIA
     Route: 048
  4. STATIC POINT POLARIZED LIQUID [Concomitant]
  5. OMEPRAZOLE [Suspect]
     Indication: REGURGITATION
     Route: 048
  6. LOW MOLECULAR HEPARIN [Concomitant]
  7. ASPIRIN [Concomitant]
  8. ISOSORBIDE MONONITRATE [Concomitant]

REACTIONS (3)
  - DIZZINESS [None]
  - FATIGUE [None]
  - BLOOD PRESSURE DECREASED [None]
